FAERS Safety Report 16191633 (Version 2)
Quarter: 2019Q2

REPORT INFORMATION
  Report Type: Report from Study
  Country: CN (occurrence: CN)
  Receive Date: 20190412
  Receipt Date: 20190417
  Transmission Date: 20190711
  Serious: Yes (Other)
  Sender: FDA-Public Use
  Company Number: CN-SA-2019SA103049

PATIENT
  Sex: Male

DRUGS (4)
  1. TAMSULOSIN HYDROCHLORIDE. [Suspect]
     Active Substance: TAMSULOSIN HYDROCHLORIDE
     Indication: LOWER URINARY TRACT SYMPTOMS
     Dosage: 0.2 MG, QD
     Route: 065
  2. SILODOSIN. [Suspect]
     Active Substance: SILODOSIN
     Indication: LOWER URINARY TRACT SYMPTOMS
     Dosage: TABLET
     Route: 065
  3. TAMSULOSIN HYDROCHLORIDE. [Suspect]
     Active Substance: TAMSULOSIN HYDROCHLORIDE
     Indication: BENIGN PROSTATIC HYPERPLASIA
  4. SILODOSIN. [Suspect]
     Active Substance: SILODOSIN
     Indication: BENIGN PROSTATIC HYPERPLASIA

REACTIONS (1)
  - Hypertension [Unknown]
